FAERS Safety Report 20431510 (Version 1)
Quarter: 2022Q1

REPORT INFORMATION
  Report Type: Spontaneous
  Country: CN (occurrence: CN)
  Receive Date: 20220204
  Receipt Date: 20220204
  Transmission Date: 20220423
  Serious: Yes (Hospitalization)
  Sender: FDA-Public Use
  Company Number: CN-PFIZER INC-202200157706

PATIENT
  Age: 70 Year
  Sex: Male
  Weight: 56 kg

DRUGS (3)
  1. VENLAFAXINE HCL [Suspect]
     Active Substance: VENLAFAXINE HYDROCHLORIDE
     Indication: Intentional overdose
     Dosage: 7 DF, SINGLE
     Route: 048
     Dates: start: 20211231, end: 20211231
  2. OLANZAPINE [Suspect]
     Active Substance: OLANZAPINE
     Indication: Intentional overdose
     Dosage: 13 DF, SINGLE
     Route: 048
     Dates: start: 20211231, end: 20211231
  3. ALPRAZOLAM [Suspect]
     Active Substance: ALPRAZOLAM
     Indication: Intentional overdose
     Dosage: 14 DF, SINGLE
     Route: 048
     Dates: start: 20211231, end: 20211231

REACTIONS (4)
  - Intentional overdose [Unknown]
  - Toxicity to various agents [Recovering/Resolving]
  - Gastritis [Recovering/Resolving]
  - Hypertension [Recovering/Resolving]

NARRATIVE: CASE EVENT DATE: 20211231
